FAERS Safety Report 8682659 (Version 2)
Quarter: 2012Q4

REPORT INFORMATION
  Report Type: Report from Study
  Country: GB (occurrence: GB)
  Receive Date: 20120725
  Receipt Date: 20121009
  Transmission Date: 20130627
  Serious: Yes (Death, Other)
  Sender: FDA-Public Use
  Company Number: GB-CELGENEUS-167-FK228-12070345

PATIENT
  Sex: Female

DRUGS (1)
  1. ROMIDEPSIN [Suspect]
     Indication: SEZARY SYNDROME
     Dosage: 14 milligram/sq. meter
     Route: 065

REACTIONS (2)
  - Cerebral haemorrhage [Fatal]
  - Mycosis fungoides stage IV [Unknown]
